FAERS Safety Report 6768692-X (Version None)
Quarter: 2010Q2

REPORT INFORMATION
  Report Type: 
  Country: None (occurrence: None)
  Receive Date: 20100614
  Receipt Date: 20100607
  Transmission Date: 20101027
  Serious: Yes (Hospitalization)
  Sender: FDA-Public Use
  Company Number: US-WATSON-2010-07568

PATIENT
  Sex: Male

DRUGS (2)
  1. ANDRODERM [Suspect]
     Indication: BLOOD TESTOSTERONE DECREASED
     Dosage: 1 PATCH, DAILY
     Route: 062
     Dates: start: 20100426
  2. ANDRODERM [Suspect]
     Dosage: 1 PATCH, DAILY
     Route: 062
     Dates: start: 20080101, end: 20100426

REACTIONS (4)
  - APPENDICECTOMY [None]
  - APPLICATION SITE ERYTHEMA [None]
  - APPLICATION SITE PRURITUS [None]
  - DRUG INEFFECTIVE [None]
